FAERS Safety Report 13354774 (Version 1)
Quarter: 2017Q1

REPORT INFORMATION
  Report Type: Spontaneous
  Country: US (occurrence: US)
  Receive Date: 20170321
  Receipt Date: 20170321
  Transmission Date: 20170429
  Serious: Yes (Other)
  Sender: FDA-Public Use
  Company Number: US-GLAXOSMITHKLINE-US2017GSK039026

PATIENT
  Age: 78 Year
  Sex: Male
  Weight: 70.76 kg

DRUGS (8)
  1. XANAX [Concomitant]
     Active Substance: ALPRAZOLAM
     Indication: SLEEP DISORDER
     Dosage: 2-3 A DAY, PRN
  2. MONOPRIL [Concomitant]
     Active Substance: FOSINOPRIL SODIUM
     Indication: BLOOD PRESSURE INCREASED
     Dosage: 10 MG, QD
  3. WELLBUTRIN [Suspect]
     Active Substance: BUPROPION HYDROCHLORIDE
     Indication: DEPRESSION
  4. PRISTIQ EXTENDED-RELEASE [Suspect]
     Active Substance: DESVENLAFAXINE SUCCINATE
     Indication: DEPRESSION
     Dosage: 50 MG, QD
     Route: 048
     Dates: start: 201612
  5. OXCARBAZEPIN [Suspect]
     Active Substance: OXCARBAZEPINE
     Indication: PRODUCT USED FOR UNKNOWN INDICATION
     Dosage: 300 MG, BID
  6. PRISTIQ EXTENDED-RELEASE [Suspect]
     Active Substance: DESVENLAFAXINE SUCCINATE
     Dosage: 100 MG, QD
     Route: 048
     Dates: start: 201701
  7. PRISTIQ EXTENDED-RELEASE [Suspect]
     Active Substance: DESVENLAFAXINE SUCCINATE
     Dosage: 50 MG, BID
     Route: 048
  8. XANAX [Concomitant]
     Active Substance: ALPRAZOLAM
     Indication: EMOTIONAL DISTRESS

REACTIONS (10)
  - Depression [Recovering/Resolving]
  - Dizziness [Recovered/Resolved]
  - Urinary hesitation [Recovering/Resolving]
  - Fatigue [Recovered/Resolved]
  - Anxiety [Unknown]
  - Feeling abnormal [Recovered/Resolved]
  - Suicidal ideation [Recovering/Resolving]
  - Nausea [Recovered/Resolved]
  - Somnolence [Recovered/Resolved]
  - Constipation [Recovering/Resolving]

NARRATIVE: CASE EVENT DATE: 201612
